FAERS Safety Report 24921551 (Version 1)
Quarter: 2025Q1

REPORT INFORMATION
  Report Type: Spontaneous
  Country: FR (occurrence: FR)
  Receive Date: 20250204
  Receipt Date: 20250204
  Transmission Date: 20250408
  Serious: Yes (Hospitalization)
  Sender: ROCHE
  Company Number: None

PATIENT
  Age: 79 Year
  Sex: Male
  Weight: 69.5 kg

DRUGS (3)
  1. MABTHERA [Suspect]
     Active Substance: RITUXIMAB
     Indication: Waldenstrom^s macroglobulinaemia
     Route: 040
     Dates: start: 20241113, end: 20241204
  2. ILOPROST ZENTIVA [Concomitant]
  3. ELIQUIS [Concomitant]
     Active Substance: APIXABAN

REACTIONS (5)
  - Drug specific antibody present [Not Recovered/Not Resolved]
  - Thrombocytopenia [Recovered/Resolved]
  - Transaminases increased [Recovered/Resolved]
  - Blood alkaline phosphatase increased [Recovered/Resolved]
  - Rash maculo-papular [Recovered/Resolved]

NARRATIVE: CASE EVENT DATE: 20241121
